FAERS Safety Report 10059320 (Version 1)
Quarter: 2014Q2

REPORT INFORMATION
  Report Type: Spontaneous
  Country: FR (occurrence: FR)
  Receive Date: 20140404
  Receipt Date: 20140404
  Transmission Date: 20141212
  Serious: Yes (Other)
  Sender: FDA-Public Use
  Company Number: CHPA2014FR004852

PATIENT
  Age: 77 Year
  Sex: Male

DRUGS (12)
  1. SCOPODERM TTS [Suspect]
     Indication: SALIVARY HYPERSECRETION
     Dosage: 1 DF, Q72H
     Route: 061
     Dates: start: 20131227, end: 20131230
  2. PERFALGAN [Suspect]
     Dosage: 1 G, QID
     Route: 042
     Dates: start: 20131229, end: 20131230
  3. TAHOR [Concomitant]
  4. PLAVIX [Concomitant]
  5. PARIET [Concomitant]
  6. SERESTA [Concomitant]
  7. CALCIDOSE [Concomitant]
  8. DIFFU K [Concomitant]
  9. SMECTA//DIOSMECTITE [Concomitant]
  10. ATARAX//HYDROXYZINE [Concomitant]
  11. ROCEPHINE [Concomitant]
  12. FRAGMINE [Concomitant]

REACTIONS (3)
  - Tongue oedema [Recovered/Resolved]
  - Tongue discolouration [Recovered/Resolved]
  - Dry mouth [Recovered/Resolved]
